FAERS Safety Report 7767231-4 (Version None)
Quarter: 2011Q3

REPORT INFORMATION
  Report Type: 
  Country: None (occurrence: None)
  Receive Date: 20110922
  Receipt Date: 20100830
  Transmission Date: 20111222
  Serious: Yes (Other)
  Sender: FDA-Public Use
  Company Number: US-ASTRAZENECA-2007UW16066

PATIENT
  Age: 515 Month
  Sex: Male
  Weight: 136.1 kg

DRUGS (17)
  1. SEROQUEL [Suspect]
     Dosage: 25-300 MG
     Route: 048
     Dates: start: 20030201, end: 20090501
  2. SEROQUEL [Suspect]
     Dosage: 25-300 MG
     Route: 048
     Dates: start: 20030201, end: 20090501
  3. SEROQUEL [Suspect]
     Indication: INSOMNIA
     Route: 048
     Dates: start: 20020101
  4. SEROQUEL [Suspect]
     Dosage: 25-300 MG
     Route: 048
     Dates: start: 20030206
  5. SEROQUEL [Suspect]
     Dosage: 25-300 MG
     Route: 048
     Dates: start: 20030206
  6. SEROQUEL [Suspect]
     Dosage: 25-300 MG
     Route: 048
     Dates: start: 20030206
  7. BUSPIRONE HCL [Concomitant]
     Dosage: 10 MG , 2 TABLETS THREE TIMES A DAY
     Route: 048
     Dates: start: 20030208
  8. WELLBUTRIN [Concomitant]
     Dates: start: 20020101, end: 20030101
  9. SEROQUEL [Suspect]
     Dosage: 25-300 MG
     Route: 048
     Dates: start: 20030201, end: 20090501
  10. SEROQUEL [Suspect]
     Dosage: 25-300 MG
     Route: 048
     Dates: start: 20030201, end: 20090501
  11. ABILIFY [Concomitant]
     Dosage: 5-10 MG
     Dates: start: 20061106, end: 20061227
  12. SEROQUEL [Suspect]
     Indication: SLEEP DISORDER
     Route: 048
     Dates: start: 20020101
  13. SEROQUEL [Suspect]
     Indication: BIPOLAR DISORDER
     Route: 048
     Dates: start: 20020101
  14. AMBIEN [Concomitant]
     Indication: INSOMNIA
     Dosage: 5-10 MG
     Route: 048
     Dates: start: 20020101, end: 20030101
  15. SEROQUEL [Suspect]
     Indication: MANIA
     Route: 048
     Dates: start: 20020101
  16. SEROQUEL [Suspect]
     Dosage: 25-300 MG
     Route: 048
     Dates: start: 20030206
  17. PAXIL [Concomitant]
     Dosage: 20-40 MG

REACTIONS (10)
  - CONVULSION [None]
  - DIVERTICULITIS [None]
  - NAUSEA [None]
  - VOMITING [None]
  - CHEST PAIN [None]
  - PANCREATITIS [None]
  - OBESITY [None]
  - IRRITABLE BOWEL SYNDROME [None]
  - ABDOMINAL PAIN [None]
  - HOT FLUSH [None]
